FAERS Safety Report 20965256 (Version 2)
Quarter: 2022Q2

REPORT INFORMATION
  Report Type: Report from Study
  Country: KR (occurrence: None)
  Receive Date: 20220616
  Receipt Date: 20220620
  Transmission Date: 20220720
  Serious: Yes (Hospitalization)
  Sender: FDA-Public Use
  Company Number: KR-ROCHE-3115668

PATIENT
  Age: 61 Year
  Sex: Male
  Weight: 56.25 kg

DRUGS (20)
  1. ATEZOLIZUMAB [Suspect]
     Active Substance: ATEZOLIZUMAB
     Indication: Hepatocellular carcinoma
     Dosage: ON 27/MAY/2022, MOST RECENT DOSE OF ATEZOLIZUMAB WAS ADMINISTERED
     Route: 041
     Dates: start: 20220425, end: 20220610
  2. BEVACIZUMAB [Suspect]
     Active Substance: BEVACIZUMAB
     Indication: Hepatocellular carcinoma
     Dosage: ON 27/MAY/2022, MOST RECENT DOSE OF BEVACIZUMAB WAS ADMINISTERED
     Route: 042
     Dates: start: 20220425, end: 20220610
  3. VIREAD [Concomitant]
     Active Substance: TENOFOVIR DISOPROXIL FUMARATE
     Dates: start: 20220415
  4. MIRABEGRON [Concomitant]
     Active Substance: MIRABEGRON
     Dates: start: 20220415
  5. HARNAL [Concomitant]
     Active Substance: TAMSULOSIN HYDROCHLORIDE
     Dates: start: 20220415
  6. URSODIOL [Concomitant]
     Active Substance: URSODIOL
     Dates: start: 20220415
  7. NORZYME [Concomitant]
     Dates: start: 20220415
  8. LYRICA [Concomitant]
     Active Substance: PREGABALIN
     Dates: start: 20220415
  9. MEGACE F [Concomitant]
     Dates: start: 20220415
  10. POLYBUTINE SR [Concomitant]
     Dates: start: 20220415
  11. NUCYNTA ER [Concomitant]
     Active Substance: TAPENTADOL HYDROCHLORIDE
     Dates: start: 20220415
  12. GODEX (SOUTH KOREA) [Concomitant]
     Dosage: 2CAP
     Dates: start: 20220517
  13. PREDNISOLONE [Concomitant]
     Active Substance: PREDNISOLONE
     Dates: start: 20220517
  14. NEXIUM [Concomitant]
     Active Substance: ESOMEPRAZOLE MAGNESIUM
     Dates: start: 20220528
  15. CODAEWON FORTE [Concomitant]
     Dates: start: 20220527
  16. TRESIBA [Concomitant]
     Active Substance: INSULIN DEGLUDEC
  17. APIDRA SOLOSTAR [Concomitant]
     Active Substance: INSULIN GLULISINE
     Dates: start: 20220522
  18. TARGIN PR [Concomitant]
     Dosage: 1TAB
     Dates: start: 20220525
  19. NEXIUM [Concomitant]
     Active Substance: ESOMEPRAZOLE MAGNESIUM
     Dates: start: 20220528
  20. BANAN [Concomitant]
     Active Substance: CEFPODOXIME PROXETIL
     Dates: start: 20220528

REACTIONS (1)
  - Hepatic encephalopathy [Recovering/Resolving]

NARRATIVE: CASE EVENT DATE: 20220605
